FAERS Safety Report 4563806-4 (Version None)
Quarter: 2005Q1

REPORT INFORMATION
  Report Type: 
  Country: None (occurrence: None)
  Receive Date: 20050121
  Receipt Date: 20041228
  Transmission Date: 20050727
  Serious: Yes (Other)
  Sender: FDA-Public Use
  Company Number: USA041287013

PATIENT
  Sex: Male
  Weight: 55 kg

DRUGS (1)
  1. ZYPREXA [Suspect]
     Dates: end: 20020101

REACTIONS (1)
  - LEUKOPENIA [None]
